FAERS Safety Report 6239896-X (Version None)
Quarter: 2009Q2

REPORT INFORMATION
  Report Type: 
  Country: None (occurrence: None)
  Receive Date: 20090623
  Receipt Date: 20090616
  Transmission Date: 20091009
  Serious: Yes (Life-Threatening)
  Sender: FDA-Public Use
  Company Number: DE-ELI_LILLY_AND_COMPANY-DE200905005163

PATIENT
  Sex: Male

DRUGS (4)
  1. BYETTA [Suspect]
     Indication: OBESITY
     Dosage: 5 UG, UNKNOWN
     Route: 058
     Dates: start: 20090323, end: 20090513
  2. METFORMIN HCL [Concomitant]
     Dosage: 1000, 2/D
     Route: 065
     Dates: start: 20040101
  3. METOPROLOL SUCCINATE [Concomitant]
     Dosage: UNK, UNKNOWN
     Route: 065
     Dates: start: 19950101
  4. COVERSUM [Concomitant]
     Dosage: UNK, UNKNOWN
     Route: 065

REACTIONS (2)
  - MOOD SWINGS [None]
  - SUICIDAL IDEATION [None]
